FAERS Safety Report 15673037 (Version 2)
Quarter: 2025Q1

REPORT INFORMATION
  Report Type: Spontaneous
  Country: AU (occurrence: AU)
  Receive Date: 20181129
  Receipt Date: 20250108
  Transmission Date: 20250408
  Serious: Yes (Other)
  Sender: MERCK
  Company Number: AU-009507513-1803AUS008811

PATIENT

DRUGS (1)
  1. PEMBROLIZUMAB [Suspect]
     Active Substance: PEMBROLIZUMAB
     Indication: Malignant melanoma

REACTIONS (5)
  - Immune-mediated adverse reaction [Recovering/Resolving]
  - Malignant neoplasm progression [Unknown]
  - Polyarthritis [Recovering/Resolving]
  - Therapy partial responder [Unknown]
  - Vitiligo [Recovering/Resolving]
